FAERS Safety Report 8459279-1 (Version None)
Quarter: 2012Q2

REPORT INFORMATION
  Report Type: 
  Country: None (occurrence: None)
  Receive Date: 20120618
  Receipt Date: 20120602
  Transmission Date: 20120825
  Serious: Yes (Hospitalization)
  Sender: FDA-Public Use
  Company Number: 2012AP001708

PATIENT
  Age: 73 Year
  Sex: Male

DRUGS (1)
  1. CARBIDOPA AND LEVODOPA [Suspect]
     Indication: PARKINSON'S DISEASE

REACTIONS (11)
  - DELIRIUM [None]
  - FALL [None]
  - OVERDOSE [None]
  - TOXICITY TO VARIOUS AGENTS [None]
  - DEMENTIA [None]
  - ATHETOSIS [None]
  - DYSKINESIA [None]
  - TREATMENT NONCOMPLIANCE [None]
  - CONFUSIONAL STATE [None]
  - HALLUCINATION, VISUAL [None]
  - GENERAL PHYSICAL HEALTH DETERIORATION [None]
